FAERS Safety Report 6139261-X (Version None)
Quarter: 2009Q2

REPORT INFORMATION
  Report Type: 
  Country: None (occurrence: None)
  Receive Date: 20090401
  Receipt Date: 20090320
  Transmission Date: 20091009
  Serious: Yes (Hospitalization)
  Sender: FDA-Public Use
  Company Number: US-BIOGENIDEC-2007BI025965

PATIENT
  Age: 53 Year
  Sex: Female
  Weight: 73 kg

DRUGS (2)
  1. TYSABRI [Suspect]
     Indication: MULTIPLE SCLEROSIS
     Route: 042
     Dates: start: 20071201, end: 20080101
  2. CELEXA [Concomitant]

REACTIONS (9)
  - ALOPECIA [None]
  - BODY HEIGHT DECREASED [None]
  - CHEST PAIN [None]
  - FEELING HOT [None]
  - INTERVERTEBRAL DISC COMPRESSION [None]
  - INTERVERTEBRAL DISC DISORDER [None]
  - MOOD SWINGS [None]
  - SUNBURN [None]
  - WEIGHT INCREASED [None]
